FAERS Safety Report 7654954-0 (Version None)
Quarter: 2011Q3

REPORT INFORMATION
  Report Type: 
  Country: None (occurrence: None)
  Receive Date: 20110728
  Receipt Date: 20110712
  Transmission Date: 20111222
  Serious: Yes (Hospitalization)
  Sender: FDA-Public Use
  Company Number: 2011MA008721

PATIENT
  Age: 50 Year
  Sex: Male

DRUGS (5)
  1. CYCLOPENTOLATE HCL [Suspect]
     Indication: NECROTISING RETINITIS
     Dosage: 1 PCT; TID; TOP
     Route: 061
  2. ASPIRIN [Suspect]
     Indication: NECROTISING RETINITIS
     Dosage: 300 MG; QD; PO
     Route: 048
  3. PREDNISOLONE [Concomitant]
  4. ACYCLOVIR [Suspect]
     Indication: NECROTISING RETINITIS
     Dosage: 1500 MG/M**2; QD; IV
     Route: 042
  5. PREDNISOLONE ACETATE [Suspect]
     Indication: NECROTISING RETINITIS
     Dosage: 60 MG; QD; PO
     Route: 048

REACTIONS (5)
  - RETINAL DETACHMENT [None]
  - NECROTISING RETINITIS [None]
  - VITRITIS [None]
  - VARICELLA VIRUS TEST POSITIVE [None]
  - CORNEAL DEPOSITS [None]
